FAERS Safety Report 10973507 (Version 1)
Quarter: 2015Q2

REPORT INFORMATION
  Report Type: Spontaneous
  Country: US (occurrence: US)
  Receive Date: 20150401
  Receipt Date: 20150401
  Transmission Date: 20150821
  Serious: No
  Sender: FDA-Public Use
  Company Number: US-BIOGENIDEC-2015BI020665

PATIENT
  Sex: Female

DRUGS (12)
  1. VITAMIN B12 [Concomitant]
     Active Substance: CYANOCOBALAMIN
  2. VITAMIN D [Concomitant]
     Active Substance: CHOLECALCIFEROL
  3. CAMELLIA SENENSIS [Concomitant]
  4. ADVIL [Concomitant]
     Active Substance: IBUPROFEN
  5. BACLOFEN. [Concomitant]
     Active Substance: BACLOFEN
  6. TYSABRI [Suspect]
     Active Substance: NATALIZUMAB
     Indication: PRODUCT USED FOR UNKNOWN INDICATION
     Route: 042
     Dates: end: 20140426
  7. LISINOPRIL. [Concomitant]
     Active Substance: LISINOPRIL
  8. FOLIC ACID. [Concomitant]
     Active Substance: FOLIC ACID
  9. AMPYRA [Concomitant]
     Active Substance: DALFAMPRIDINE
     Route: 048
     Dates: start: 20140103
  10. TECFIDERA [Concomitant]
     Active Substance: DIMETHYL FUMARATE
     Indication: PRODUCT USED FOR UNKNOWN INDICATION
     Dates: start: 20140426
  11. COD LIVER OIL [Concomitant]
     Active Substance: COD LIVER OIL
  12. TYLENOL [Concomitant]
     Active Substance: ACETAMINOPHEN

REACTIONS (1)
  - Urticaria [Unknown]
